FAERS Safety Report 7728271-4 (Version None)
Quarter: 2011Q3

REPORT INFORMATION
  Report Type: 
  Country: None (occurrence: None)
  Receive Date: 20110905
  Receipt Date: 20110829
  Transmission Date: 20111222
  Serious: Yes (Other)
  Sender: FDA-Public Use
  Company Number: PHHY2011NL63490

PATIENT
  Sex: Male

DRUGS (3)
  1. ZOMETA [Suspect]
     Dosage: 4 MG, PER 5 ML ONCE PER 28 DAYS
     Route: 042
     Dates: start: 20110616
  2. ZOMETA [Suspect]
     Indication: PROSTATE CANCER METASTATIC
     Dosage: 4 MG, PER 5 ML ONCE PER 28 DAYS
     Route: 042
     Dates: start: 20100325
  3. ZOMETA [Suspect]
     Dosage: 4 MG, PER 5 ML ONCE PER 28 DAYS
     Route: 042
     Dates: start: 20110714

REACTIONS (7)
  - MALAISE [None]
  - FATIGUE [None]
  - NEOPLASM PROGRESSION [None]
  - WEIGHT DECREASED [None]
  - FEELING ABNORMAL [None]
  - TERMINAL STATE [None]
  - NEOPLASM MALIGNANT [None]
